FAERS Safety Report 17869486 (Version 1)
Quarter: 2020Q2

REPORT INFORMATION
  Report Type: Spontaneous
  Country: US (occurrence: US)
  Receive Date: 20200608
  Receipt Date: 20200608
  Transmission Date: 20200714
  Serious: No
  Sender: FDA-Public Use
  Company Number: US-HORIZON-TEP-0377-2020

PATIENT
  Age: 41 Year
  Sex: Female

DRUGS (1)
  1. TEPEZZA [Suspect]
     Active Substance: TEPROTUMUMAB-TRBW
     Indication: ENDOCRINE OPHTHALMOPATHY
     Dosage: 20MG/KG
     Route: 042
     Dates: start: 2020

REACTIONS (2)
  - Hyperglycaemia [Recovering/Resolving]
  - Glycosylated haemoglobin increased [Recovering/Resolving]

NARRATIVE: CASE EVENT DATE: 2020
